FAERS Safety Report 7269607-0 (Version None)
Quarter: 2011Q1

REPORT INFORMATION
  Report Type: 
  Country: None (occurrence: None)
  Receive Date: 20110202
  Receipt Date: 20110125
  Transmission Date: 20110831
  Serious: Yes (Hospitalization)
  Sender: FDA-Public Use
  Company Number: US-JNJFOC-20100907553

PATIENT
  Sex: Female
  Weight: 62.14 kg

DRUGS (5)
  1. FENTANYL-100 [Suspect]
     Indication: PAIN
     Route: 062
  2. FLEXERIL [Concomitant]
     Indication: ILL-DEFINED DISORDER
     Route: 048
  3. OXYCODONE HCL AND ACETAMINOPHEN [Concomitant]
     Indication: BREAKTHROUGH PAIN
     Dosage: 10-325 MG
     Route: 048
  4. FENTANYL-100 [Suspect]
     Indication: BACK PAIN
     Route: 062
  5. DURAGESIC-50 [Suspect]
     Indication: PAIN
     Route: 062

REACTIONS (5)
  - PRODUCT QUALITY ISSUE [None]
  - BACK DISORDER [None]
  - WRONG TECHNIQUE IN DRUG USAGE PROCESS [None]
  - DRUG EFFECT DECREASED [None]
  - PRODUCT ADHESION ISSUE [None]
